FAERS Safety Report 9605635 (Version 1)
Quarter: 2013Q4

REPORT INFORMATION
  Report Type: Report from Study
  Country: SE (occurrence: SE)
  Receive Date: 20131008
  Receipt Date: 20131008
  Transmission Date: 20140711
  Serious: Yes (Hospitalization, Other)
  Sender: FDA-Public Use
  Company Number: SE-ROCHE-1285107

PATIENT
  Sex: Female

DRUGS (7)
  1. RANIBIZUMAB [Suspect]
     Indication: AGE-RELATED MACULAR DEGENERATION
     Route: 050
     Dates: start: 20110926
  2. RANIBIZUMAB [Suspect]
     Route: 050
     Dates: start: 20130202
  3. OMEPRAZOLE [Concomitant]
     Route: 065
     Dates: start: 20120602
  4. WARAN [Concomitant]
     Route: 065
     Dates: start: 20120721
  5. DIGOXIN [Concomitant]
     Route: 065
     Dates: start: 20120602
  6. FURIX [Concomitant]
     Route: 065
     Dates: start: 20120602
  7. SIMVASTATIN [Concomitant]

REACTIONS (7)
  - Radius fracture [Unknown]
  - Joint dislocation [Unknown]
  - Fall [Unknown]
  - Hip fracture [Recovered/Resolved]
  - Radius fracture [Recovered/Resolved]
  - Arthritis [Unknown]
  - Acetabulum fracture [Unknown]
